FAERS Safety Report 10748190 (Version 2)
Quarter: 2015Q1

REPORT INFORMATION
  Report Type: Report from Study
  Country: US (occurrence: US)
  Receive Date: 20150129
  Receipt Date: 20150212
  Transmission Date: 20150721
  Serious: Yes (Death, Life-Threatening)
  Sender: FDA-Public Use
  Company Number: US-SA-2015SA009502

PATIENT
  Age: 67 Year
  Sex: Male
  Weight: 49.7 kg

DRUGS (24)
  1. CLOFARABINE [Suspect]
     Active Substance: CLOFARABINE
     Indication: ACUTE MYELOID LEUKAEMIA
     Dosage: 228 MG
     Route: 065
     Dates: start: 20141219, end: 20141223
  2. SYNTHROID [Concomitant]
     Active Substance: LEVOTHYROXINE SODIUM
     Dosage: 88 MCG IN SODIUM CHLORIDE (0.9%) 44 ML
     Route: 042
  3. ULTRAM [Concomitant]
     Active Substance: TRAMADOL HYDROCHLORIDE
     Route: 048
  4. VANCOMYCIN [Suspect]
     Active Substance: VANCOMYCIN
     Route: 065
     Dates: start: 20150107
  5. ALBUTEROL. [Concomitant]
     Active Substance: ALBUTEROL
  6. ATROPINE [Concomitant]
     Active Substance: ATROPINE
     Route: 060
  7. MORPHINE [Concomitant]
     Active Substance: MORPHINE
     Dosage: 100 MG IN 100 ML NACL SOLUTION
     Dates: start: 20150121
  8. SUBLIMAZE [Concomitant]
     Active Substance: FENTANYL CITRATE
  9. LOMOTIL [Concomitant]
     Active Substance: ATROPINE SULFATE\DIPHENOXYLATE HYDROCHLORIDE
     Route: 048
  10. COMPAZINE [Concomitant]
     Active Substance: PROCHLORPERAZINE MALEATE
     Dosage: 5-10 MG
     Route: 042
  11. VANCOMYCIN [Concomitant]
     Active Substance: VANCOMYCIN
     Dates: start: 20150107
  12. ATIVAN [Concomitant]
     Active Substance: LORAZEPAM
     Route: 048
  13. SODIUM CHLORIDE. [Concomitant]
     Active Substance: SODIUM CHLORIDE
     Route: 042
     Dates: start: 20150121
  14. IMODIUM [Concomitant]
     Active Substance: LOPERAMIDE HYDROCHLORIDE
     Route: 048
  15. CEFEPIME [Concomitant]
     Active Substance: CEFEPIME\CEFEPIME HYDROCHLORIDE
  16. DIFLUCAN [Concomitant]
     Active Substance: FLUCONAZOLE
     Route: 048
  17. CLOFARABINE [Suspect]
     Active Substance: CLOFARABINE
     Indication: ACUTE MYELOID LEUKAEMIA
     Dosage: 156 MG
     Route: 065
     Dates: start: 20150108, end: 20150112
  18. ZOVIRAX [Concomitant]
     Active Substance: ACYCLOVIR
     Route: 048
     Dates: start: 20150123, end: 20150123
  19. ATIVAN [Concomitant]
     Active Substance: LORAZEPAM
     Route: 042
  20. OXYCODONE [Concomitant]
     Active Substance: OXYCODONE
     Route: 048
  21. FLAGYL [Concomitant]
     Active Substance: METRONIDAZOLE\METRONIDAZOLE HYDROCHLORIDE
  22. VERSED [Concomitant]
     Active Substance: MIDAZOLAM HYDROCHLORIDE
     Dosage: DOSE: 0.5-1O MG
     Route: 042
  23. NICOTINE. [Concomitant]
     Active Substance: NICOTINE
     Dosage: 1 PATCH DAILY
     Route: 062
  24. MAGNESIUM SULFATE. [Concomitant]
     Active Substance: MAGNESIUM SULFATE
     Route: 042

REACTIONS (2)
  - Acute kidney injury [Fatal]
  - Multi-organ failure [Unknown]

NARRATIVE: CASE EVENT DATE: 20150119
